FAERS Safety Report 14642827 (Version 1)
Quarter: 2018Q1

REPORT INFORMATION
  Report Type: Spontaneous
  Country: BE (occurrence: BE)
  Receive Date: 20180315
  Receipt Date: 20180315
  Transmission Date: 20180509
  Serious: Yes (Other)
  Sender: FDA-Public Use
  Company Number: BE-ASTRAZENECA-2018SE30200

PATIENT
  Age: 70 Year
  Sex: Male

DRUGS (9)
  1. SELOZOK [Concomitant]
     Active Substance: METOPROLOL SUCCINATE
  2. LIPITOR [Concomitant]
     Active Substance: ATORVASTATIN CALCIUM
  3. INDOCOLLYRE [Concomitant]
     Active Substance: INDOMETHACIN
     Dosage: 1 MG/ML
  4. GLUCOPHAGE [Concomitant]
     Active Substance: METFORMIN HYDROCHLORIDE
  5. TAMSULOSIN [Concomitant]
     Active Substance: TAMSULOSIN
     Dosage: 0,4 MG
  6. BYDUREON [Suspect]
     Active Substance: EXENATIDE
     Indication: DIABETES MELLITUS
     Route: 065
  7. DICLOFENAC [Concomitant]
     Active Substance: DICLOFENAC
     Dosage: 0.1%
  8. NOVONORM [Concomitant]
     Active Substance: REPAGLINIDE
  9. ASAFLOW [Concomitant]
     Active Substance: ASPIRIN

REACTIONS (2)
  - Blood creatine phosphokinase increased [Unknown]
  - Lipase increased [Unknown]

NARRATIVE: CASE EVENT DATE: 20180202
